FAERS Safety Report 15489412 (Version 2)
Quarter: 2018Q4

REPORT INFORMATION
  Report Type: Other
  Country: IR (occurrence: IR)
  Receive Date: 20181011
  Receipt Date: 20181024
  Transmission Date: 20190205
  Serious: Yes (Death, Life-Threatening, Hospitalization)
  Sender: FDA-Public Use
  Company Number: IR-GE HEALTHCARE LIFE SCIENCES-2018CSU004035

PATIENT

DRUGS (2)
  1. OMNIPAQUE [Suspect]
     Active Substance: IOHEXOL
     Dosage: 200 ML, SINGLE
     Route: 013
     Dates: start: 20180830, end: 20180830
  2. OMNIPAQUE [Suspect]
     Active Substance: IOHEXOL
     Indication: MYOCARDIAL ISCHAEMIA
     Dosage: 250 ML, SINGLE
     Route: 013
     Dates: start: 20180829, end: 20180829

REACTIONS (6)
  - Anaphylactic reaction [Fatal]
  - Myocardial infarction [Unknown]
  - Kounis syndrome [Fatal]
  - Hypoxic-ischaemic encephalopathy [Unknown]
  - Cardio-respiratory arrest [Fatal]
  - Ventricular fibrillation [Unknown]

NARRATIVE: CASE EVENT DATE: 20180829
